FAERS Safety Report 7157471-X (Version None)
Quarter: 2010Q4

REPORT INFORMATION
  Report Type: 
  Country: None (occurrence: None)
  Receive Date: 20101214
  Receipt Date: 20101203
  Transmission Date: 20110411
  Serious: Yes (Death, Hospitalization)
  Sender: FDA-Public Use
  Company Number: B0688373A

PATIENT
  Sex: Female

DRUGS (5)
  1. TYVERB [Suspect]
     Indication: BREAST CANCER
     Dosage: 1000MG PER DAY
     Route: 048
     Dates: start: 20100924, end: 20101102
  2. HERCEPTIN [Suspect]
     Indication: BREAST CANCER
     Dosage: 2MCK WEEKLY
     Route: 042
     Dates: start: 20100924, end: 20101102
  3. CEFTRIAXONE SODIUM [Concomitant]
     Dates: start: 20101027, end: 20101102
  4. LANOXIN [Concomitant]
     Dates: start: 20101025, end: 20101102
  5. TAZOCIN [Concomitant]
     Dates: start: 20101102, end: 20101103

REACTIONS (5)
  - BREAST CANCER [None]
  - DIARRHOEA [None]
  - OFF LABEL USE [None]
  - PYREXIA [None]
  - STOMATITIS [None]
